FAERS Safety Report 5191315-0 (Version None)
Quarter: 2006Q4

REPORT INFORMATION
  Report Type: 
  Country: None (occurrence: None)
  Receive Date: 20061219
  Receipt Date: 20061206
  Transmission Date: 20070319
  Serious: Yes (Hospitalization)
  Sender: FDA-Public Use
  Company Number: 2006-03025

PATIENT
  Age: 83 Year
  Sex: Male
  Weight: 760 kg

DRUGS (2)
  1. VELCADE [Suspect]
     Indication: MULTIPLE MYELOMA
     Dosage: 1.00 MG, INTRAVENOUS
     Route: 042
     Dates: start: 20060526, end: 20060606
  2. KEVATRIL (GRANISETRON HYDROCHLORIDE) [Concomitant]

REACTIONS (15)
  - ACQUIRED IMMUNODEFICIENCY SYNDROME [None]
  - ANAEMIA [None]
  - AORTIC ELONGATION [None]
  - ATRIOVENTRICULAR BLOCK FIRST DEGREE [None]
  - BONE DISORDER [None]
  - BUNDLE BRANCH BLOCK RIGHT [None]
  - HEART VALVE INSUFFICIENCY [None]
  - HYPERTENSION [None]
  - OEDEMA PERIPHERAL [None]
  - PAIN [None]
  - PERIPHERAL ARTERY ANEURYSM [None]
  - PLASMACYTOMA [None]
  - RIGHT VENTRICULAR FAILURE [None]
  - SPLENOMEGALY [None]
  - THROMBOCYTOPENIA [None]
